FAERS Safety Report 8796051 (Version 1)
Quarter: 2012Q4

REPORT INFORMATION
  Report Type: 
  Country: DE (occurrence: US)
  Receive Date: 20120920
  Receipt Date: 20120920
  Transmission Date: 20130627
  Serious: Yes (Other)
  Sender: FDA-Public Use
  Company Number: DE-RANBAXY-2012US-60298

PATIENT
  Sex: Female
  Weight: 86 kg

DRUGS (4)
  1. PANTOPRAZOLE [Suspect]
     Indication: GASTROINTESTINAL ULCER
     Dosage: 40 mg/day
     Route: 048
  2. PREMARIN [Suspect]
     Indication: HORMONE SUPPRESSION THERAPY
     Dosage: 0.3 mg/day
     Route: 048
     Dates: start: 1991
  3. IMITREX [Concomitant]
     Indication: MIGRAINE
     Dosage: UNK
     Route: 065
  4. ESTRATEST (ESTRATEST HS) [Concomitant]
     Indication: PRODUCT USED FOR UNKNOWN INDICATION
     Dosage: UNK
     Route: 065

REACTIONS (3)
  - Herpes zoster [Recovered/Resolved]
  - Oropharyngeal pain [Unknown]
  - Ulcer [Unknown]
